FAERS Safety Report 6683354-5 (Version None)
Quarter: 2010Q2

REPORT INFORMATION
  Report Type: 
  Country: None (occurrence: None)
  Receive Date: 20100415
  Receipt Date: 20100405
  Transmission Date: 20101027
  Serious: Yes (Other)
  Sender: FDA-Public Use
  Company Number: US-BAXTER-2010BH008896

PATIENT
  Age: 82 Year
  Sex: Female

DRUGS (1)
  1. ATROPINE SULFATE [Suspect]
     Indication: BRADYCARDIA
     Route: 042

REACTIONS (1)
  - CONDITION AGGRAVATED [None]
